FAERS Safety Report 7283573-3 (Version None)
Quarter: 2011Q1

REPORT INFORMATION
  Report Type: 
  Country: None (occurrence: None)
  Receive Date: 20110209
  Receipt Date: 20110209
  Transmission Date: 20110831
  Serious: No
  Sender: FDA-Public Use
  Company Number: A0885473A

PATIENT
  Age: 47 Year
  Sex: Male

DRUGS (5)
  1. ALBUTEROL [Concomitant]
  2. ASPIRIN [Concomitant]
  3. ADVAIR [Suspect]
     Indication: CHRONIC OBSTRUCTIVE PULMONARY DISEASE
     Dosage: 1PUFF TWICE PER DAY
     Route: 055
     Dates: start: 20030101
  4. SPIRIVA [Concomitant]
  5. ATENOLOL [Concomitant]

REACTIONS (3)
  - PRODUCT QUALITY ISSUE [None]
  - CHEST DISCOMFORT [None]
  - DRUG INEFFECTIVE [None]
